FAERS Safety Report 8037387-7 (Version None)
Quarter: 2011Q4

REPORT INFORMATION
  Report Type: 
  Country: None (occurrence: None)
  Receive Date: 20111202
  Receipt Date: 20110209
  Transmission Date: 20120403
  Serious: Yes (Hospitalization)
  Sender: FDA-Public Use
  Company Number: 2011SP006195

PATIENT
  Age: 51 Year
  Sex: Female

DRUGS (2)
  1. NUVARING [Suspect]
     Indication: CONTRACEPTION
     Dates: start: 20070201, end: 20091001
  2. MELOXICAM [Concomitant]

REACTIONS (10)
  - INSOMNIA [None]
  - LIGAMENT SPRAIN [None]
  - PLANTAR FASCIITIS [None]
  - ELECTROCARDIOGRAM ABNORMAL [None]
  - URINARY TRACT INFECTION [None]
  - ANXIETY [None]
  - DYSPEPSIA [None]
  - OEDEMA PERIPHERAL [None]
  - PULMONARY EMBOLISM [None]
  - HYPERTENSION [None]
